FAERS Safety Report 8050765-5 (Version None)
Quarter: 2012Q1

REPORT INFORMATION
  Report Type: 
  Country: None (occurrence: None)
  Receive Date: 20120117
  Receipt Date: 20120110
  Transmission Date: 20120608
  Serious: Yes (Hospitalization, Other)
  Sender: FDA-Public Use
  Company Number: US-ASTRAZENECA-2011SE71153

PATIENT
  Age: 60 Year
  Sex: Female

DRUGS (3)
  1. 15 KINDS OF MEDICINES [Concomitant]
  2. ZETIA [Concomitant]
  3. CRESTOR [Suspect]
     Indication: BLOOD CHOLESTEROL ABNORMAL
     Route: 048

REACTIONS (3)
  - CEREBROVASCULAR ACCIDENT [None]
  - BLOOD CHOLESTEROL ABNORMAL [None]
  - VERTIGO [None]
